FAERS Safety Report 9215916 (Version 2)
Quarter: 2013Q2

REPORT INFORMATION
  Report Type: Spontaneous
  Country: US (occurrence: None)
  Receive Date: 20130402
  Receipt Date: 20130402
  Transmission Date: 20140414
  Serious: Yes (Death)
  Sender: FDA-Public Use
  Company Number: ADR-2013-00550

PATIENT
  Age: 42 Year
  Sex: Female

DRUGS (4)
  1. BACLOFEN INTRATHECAL [Suspect]
     Indication: SPINAL PAIN
  2. BACLOFEN INTRATHECAL [Suspect]
     Indication: BACK PAIN
  3. SUFENTANIL [Concomitant]
  4. BUPIVACAINE INTRATHECAL [Concomitant]

REACTIONS (1)
  - Death [None]
